FAERS Safety Report 7995324-5 (Version None)
Quarter: 2011Q4

REPORT INFORMATION
  Report Type: 
  Country: None (occurrence: None)
  Receive Date: 20111220
  Receipt Date: 20111209
  Transmission Date: 20120403
  Serious: Yes (Death, Hospitalization, Other)
  Sender: FDA-Public Use
  Company Number: FR-ACTELION-A-CH2011-45770

PATIENT
  Sex: Female
  Weight: 7.5 kg

DRUGS (3)
  1. TRACLEER [Suspect]
     Dosage: 7.5 MG, BID
     Route: 048
     Dates: start: 20101110, end: 20101113
  2. TRACLEER [Suspect]
     Dosage: 7.5 MG, BID
     Route: 048
     Dates: start: 20110113, end: 20110201
  3. TRACLEER [Suspect]
     Indication: PULMONARY ARTERIAL HYPERTENSION
     Dosage: 15 MG, BID
     Route: 048
     Dates: start: 20101114, end: 20110112

REACTIONS (5)
  - HEPATIC ENZYME INCREASED [None]
  - ALANINE AMINOTRANSFERASE INCREASED [None]
  - BLOOD DISORDER [None]
  - GRAFT VERSUS HOST DISEASE [None]
  - ASPARTATE AMINOTRANSFERASE INCREASED [None]
